FAERS Safety Report 4454300-X (Version None)
Quarter: 2004Q3

REPORT INFORMATION
  Report Type: 
  Country: None (occurrence: None)
  Receive Date: 20040916
  Receipt Date: 20040916
  Transmission Date: 20050211
  Serious: Yes (Hospitalization)
  Sender: FDA-Public Use
  Company Number: None

PATIENT
  Age: 68 Year
  Sex: Male
  Weight: 64 kg

DRUGS (2)
  1. COUMADIN [Suspect]
     Indication: ARRHYTHMIA
     Dosage: 3 MG/5XWK  5 MG/2XWK
  2. DICLOXACILLIN [Suspect]
     Indication: INFECTION
     Dosage: 500 MG QID
     Dates: start: 20040901, end: 20040914

REACTIONS (4)
  - BONE PAIN [None]
  - HAEMORRHAGE [None]
  - INFECTION [None]
  - INTERNATIONAL NORMALISED RATIO INCREASED [None]
